FAERS Safety Report 22786939 (Version 2)
Quarter: 2024Q2

REPORT INFORMATION
  Report Type: Report from Study
  Country: US (occurrence: US)
  Receive Date: 20230804
  Receipt Date: 20240621
  Transmission Date: 20240715
  Serious: Yes (Other)
  Sender: FDA-Public Use
  Company Number: US-ORG100014127-2023000824

PATIENT
  Age: 64 Year
  Sex: Male

DRUGS (10)
  1. LYSODREN [Suspect]
     Active Substance: MITOTANE
     Indication: Adrenal gland cancer
     Dosage: 500 MG: 03 TABLETS 02 TIMES DAILY.
     Route: 048
     Dates: start: 20220615, end: 202307
  2. ATORVASTATIN [Concomitant]
     Active Substance: ATORVASTATIN
     Indication: Product used for unknown indication
     Dosage: 10 MG; 20 MG
  3. MIRTAZAPINE TAB 15MG [Concomitant]
     Indication: Product used for unknown indication
  4. PREDNISONE [Concomitant]
     Active Substance: PREDNISONE
     Indication: Product used for unknown indication
  5. BUPROPION HYDROCHLORIDE [Concomitant]
     Active Substance: BUPROPION HYDROCHLORIDE
     Indication: Product used for unknown indication
  6. Levothyroxine tab 200mcg [Concomitant]
     Indication: Product used for unknown indication
  7. Methocarbamol tab 500mg [Concomitant]
     Indication: Product used for unknown indication
  8. OMEPRAZOLE [Concomitant]
     Active Substance: DONEPEZIL HYDROCHLORIDE\OMEPRAZOLE\OMEPRAZOLE MAGNESIUM
     Indication: Product used for unknown indication
  9. ROSUVASTATIN [Concomitant]
     Active Substance: ROSUVASTATIN
     Indication: Product used for unknown indication
  10. sertraline Tab 50mg [Concomitant]
     Indication: Product used for unknown indication

REACTIONS (5)
  - Thrombosis [Unknown]
  - Haemangioma [Unknown]
  - Depression [Unknown]
  - Cognitive disorder [Unknown]
  - Fatigue [Unknown]
